FAERS Safety Report 5124514-4 (Version None)
Quarter: 2006Q3

REPORT INFORMATION
  Report Type: 
  Country: None (occurrence: None)
  Receive Date: 20060821
  Receipt Date: 20060619
  Transmission Date: 20061208
  Serious: No
  Sender: FDA-Public Use
  Company Number: TPA2006A00824

PATIENT
  Sex: Female

DRUGS (6)
  1. ROZEREM [Suspect]
     Dosage: PER ORAL
     Route: 048
  2. LEXAPRO (ESCITALOPRAM OXALATE) (20 MILLIGRAM) [Concomitant]
  3. GEODON (ZIPRASIDONE HYDROCHLORIDE) (40 MILLIGRAM) [Concomitant]
  4. CLONAZEPAM (CLONAZEPAM) (1 MILLIGRAM) [Concomitant]
  5. LYRICA (PREGABALIN) (150 MILLIGRAM) [Concomitant]
  6. MIGRAINE ABORTIVES (ALL OTHER THERAPEUTIC PRODUCTS) [Concomitant]

REACTIONS (5)
  - AGITATION [None]
  - ANXIETY [None]
  - DRUG WITHDRAWAL SYNDROME [None]
  - MIGRAINE [None]
  - SUICIDAL IDEATION [None]
